FAERS Safety Report 6855035-6 (Version None)
Quarter: 2010Q3

REPORT INFORMATION
  Report Type: 
  Country: None (occurrence: None)
  Receive Date: 20100717
  Receipt Date: 20080329
  Transmission Date: 20110219
  Serious: Yes (Other)
  Sender: FDA-Public Use
  Company Number: US-PFIZER INC-2008001137

PATIENT
  Sex: Male

DRUGS (1)
  1. CHANTIX [Suspect]

REACTIONS (10)
  - ABDOMINAL PAIN UPPER [None]
  - ABNORMAL BEHAVIOUR [None]
  - DEPRESSION [None]
  - DYSGEUSIA [None]
  - FEELING ABNORMAL [None]
  - GASTRIC DISORDER [None]
  - HALLUCINATION [None]
  - NIGHTMARE [None]
  - STRESS [None]
  - SUICIDAL IDEATION [None]
